FAERS Safety Report 5076924-1 (Version None)
Quarter: 2006Q3

REPORT INFORMATION
  Report Type: 
  Country: None (occurrence: None)
  Receive Date: 20060810
  Receipt Date: 20060803
  Transmission Date: 20061208
  Serious: Yes (Hospitalization)
  Sender: FDA-Public Use
  Company Number: 2006CG01317

PATIENT
  Age: 73 Year
  Sex: Female

DRUGS (13)
  1. OMEPRAZOLE [Suspect]
     Route: 048
     Dates: start: 20060626, end: 20060705
  2. VOLTAREN [Suspect]
     Indication: SCIATICA
     Route: 048
     Dates: start: 20060626, end: 20060705
  3. DI ANTALVIC [Suspect]
     Indication: SCIATICA
     Route: 048
     Dates: start: 20060626, end: 20060705
  4. APROVEL [Suspect]
     Dates: end: 20060701
  5. LASILIX [Suspect]
     Dates: end: 20060701
  6. PREVISCAN [Concomitant]
     Dates: end: 20060701
  7. PREVISCAN [Concomitant]
     Dates: start: 20060710
  8. CORDARONE [Concomitant]
  9. NOVONORM [Concomitant]
  10. LANTUS [Concomitant]
  11. LEVOTHYROXINE SODIUM [Concomitant]
  12. ALLOPURINOL [Concomitant]
     Dates: start: 20060629, end: 20060701
  13. FENOFIBRATE [Concomitant]
     Dates: end: 20060701

REACTIONS (2)
  - BLOOD CREATININE INCREASED [None]
  - DERMATITIS EXFOLIATIVE [None]
